FAERS Safety Report 6998491-5 (Version None)
Quarter: 2010Q3

REPORT INFORMATION
  Report Type: 
  Country: None (occurrence: None)
  Receive Date: 20100920
  Receipt Date: 20100412
  Transmission Date: 20110219
  Serious: Yes (Other)
  Sender: FDA-Public Use
  Company Number: US-ASTRAZENECA-2009UW17132

PATIENT
  Age: 478 Month
  Sex: Male
  Weight: 147 kg

DRUGS (18)
  1. SEROQUEL [Suspect]
     Dosage: 25-200MG
     Route: 048
     Dates: start: 20041116
  2. INDERAL [Concomitant]
     Dates: start: 20050207
  3. TRICOR [Concomitant]
     Indication: DYSLIPIDAEMIA
     Dates: start: 20070508
  4. TRICOR [Concomitant]
     Indication: HYPERTRIGLYCERIDAEMIA
     Dates: start: 20070508
  5. PROTONIX [Concomitant]
     Indication: GASTROOESOPHAGEAL REFLUX DISEASE
     Dates: start: 20070101
  6. LORAZEPAM [Concomitant]
     Dosage: 0.5-1MG
     Dates: start: 20040909
  7. ZOLOFT [Concomitant]
     Dates: start: 20040909
  8. GEODON [Concomitant]
     Dates: start: 20040909
  9. CHLORDIAZEPOXIDE [Concomitant]
     Dates: start: 20050308
  10. PAXIL CR [Concomitant]
     Dates: start: 20041116
  11. SIMVASTATIN [Concomitant]
     Indication: DYSLIPIDAEMIA
  12. KLONOPIN [Concomitant]
     Dates: start: 20071210
  13. TOPAMAX [Concomitant]
     Dates: start: 20071210
  14. HALDOL [Concomitant]
     Dates: start: 20071210
  15. ASPIRIN [Concomitant]
     Dates: start: 20071210
  16. METFORMIN [Concomitant]
     Dates: start: 20071210
  17. ACE INHIBITORS [Concomitant]
     Dates: start: 20071210
  18. BETA-BLOCKERS [Concomitant]
     Dates: start: 20071210

REACTIONS (3)
  - ERECTILE DYSFUNCTION [None]
  - INSULIN RESISTANCE [None]
  - TYPE 2 DIABETES MELLITUS [None]
